FAERS Safety Report 18430107 (Version 1)
Quarter: 2020Q4

REPORT INFORMATION
  Report Type: Spontaneous
  Country: NG (occurrence: NG)
  Receive Date: 20201027
  Receipt Date: 20201027
  Transmission Date: 20210114
  Serious: Yes (Other)
  Sender: FDA-Public Use
  Company Number: NG-LUPIN PHARMACEUTICALS INC.-2020-06791

PATIENT
  Age: 39 Year
  Sex: Female

DRUGS (12)
  1. PREDNISOLONE. [Suspect]
     Active Substance: PREDNISOLONE
     Indication: SYSTEMIC LUPUS ERYTHEMATOSUS
     Dosage: UNK
     Route: 048
  2. DAPSONE. [Suspect]
     Active Substance: DAPSONE
     Dosage: 50 MILLIGRAM, QD
     Route: 065
  3. HYDROXYCHLOROQUINE SULFATE TABLETS [Suspect]
     Active Substance: HYDROXYCHLOROQUINE SULFATE
     Indication: SYSTEMIC LUPUS ERYTHEMATOSUS
     Dosage: UNK
     Route: 048
  4. CLINDAMYCIN. [Suspect]
     Active Substance: CLINDAMYCIN
     Indication: SYSTEMIC LUPUS ERYTHEMATOSUS
     Dosage: 600 MILLIGRAM, BID
     Route: 048
  5. MYCOPHENOLATE MOFETIL. [Suspect]
     Active Substance: MYCOPHENOLATE MOFETIL
     Indication: SYSTEMIC LUPUS ERYTHEMATOSUS
     Dosage: 1.5 GRAM, BID
     Route: 065
  6. HYDROXYCHLOROQUINE SULFATE TABLETS [Suspect]
     Active Substance: HYDROXYCHLOROQUINE SULFATE
     Dosage: 200 MILLIGRAM, QD
     Route: 048
  7. BETAMETHASONE. [Suspect]
     Active Substance: BETAMETHASONE
     Indication: SYSTEMIC LUPUS ERYTHEMATOSUS
     Dosage: UNK UNK, BID
     Route: 061
  8. LISINOPRIL TABLETS [Suspect]
     Active Substance: LISINOPRIL
     Indication: SYSTEMIC LUPUS ERYTHEMATOSUS
     Dosage: 5 MILLIGRAM, QD
     Route: 065
  9. PREDNISOLONE. [Suspect]
     Active Substance: PREDNISOLONE
     Dosage: 20 MILLIGRAM, QD
     Route: 048
  10. MYCOPHENOLATE MOFETIL. [Suspect]
     Active Substance: MYCOPHENOLATE MOFETIL
     Dosage: 500 MILLIGRAM, BID
     Route: 065
  11. DAPSONE. [Suspect]
     Active Substance: DAPSONE
     Indication: SYSTEMIC LUPUS ERYTHEMATOSUS
     Dosage: UNK
     Route: 065
  12. MYCOPHENOLATE MOFETIL. [Suspect]
     Active Substance: MYCOPHENOLATE MOFETIL
     Dosage: 1 GRAM, BID
     Route: 065

REACTIONS (2)
  - Drug ineffective [Unknown]
  - Off label use [Unknown]
